FAERS Safety Report 11142739 (Version 1)
Quarter: 2015Q2

REPORT INFORMATION
  Report Type: Spontaneous
  Country: DE (occurrence: DE)
  Receive Date: 20150527
  Receipt Date: 20150527
  Transmission Date: 20150821
  Serious: Yes (Death, Other)
  Sender: FDA-Public Use
  Company Number: DE-TEVA-557883GER

PATIENT
  Age: 62 Year
  Sex: Male

DRUGS (14)
  1. FUROSEMID-RATIOPHARM 20 MG/2 ML INJEKTIONSL?SUNG [Suspect]
     Active Substance: FUROSEMIDE
     Dosage: 40 MILLIGRAM DAILY;
     Route: 042
  2. DORMICUM [Concomitant]
     Active Substance: MIDAZOLAM\MIDAZOLAM HYDROCHLORIDE
     Route: 042
  3. MORPHIN [Concomitant]
     Active Substance: MORPHINE
     Route: 042
  4. MEROPENEM. [Concomitant]
     Active Substance: MEROPENEM
     Dosage: 3 GRAM DAILY;
     Route: 042
     Dates: start: 20150407, end: 20150417
  5. ASPIRIN. [Concomitant]
     Active Substance: ASPIRIN
     Dosage: 100 MILLIGRAM DAILY;
     Route: 050
  6. ALDACTONE [Concomitant]
     Active Substance: SPIRONOLACTONE
     Route: 050
  7. CANCIDAS [Concomitant]
     Active Substance: CASPOFUNGIN ACETATE
     Dosage: 50 MILLIGRAM DAILY;
     Route: 042
     Dates: start: 20150417, end: 20150424
  8. NOREPINEPHRINE [Concomitant]
     Active Substance: NOREPINEPHRINE\NOREPINEPHRINE BITARTRATE
     Route: 042
  9. KONAKION [Concomitant]
     Active Substance: PHYTONADIONE
     Route: 042
  10. SIMVASTATIN. [Concomitant]
     Active Substance: SIMVASTATIN
     Dosage: 40 MILLIGRAM DAILY;
     Route: 050
  11. ENTERALE ERNAEHRUNG (NUTRISON MF) [Concomitant]
     Route: 050
  12. INSULIN [Concomitant]
     Active Substance: INSULIN NOS
     Route: 058
  13. ZYVOXID [Concomitant]
     Active Substance: LINEZOLID
     Dosage: 1200 MILLIGRAM DAILY;
     Route: 042
     Dates: start: 20150407, end: 20150417
  14. CORDAREX [Concomitant]
     Active Substance: AMIODARONE
     Route: 042

REACTIONS (2)
  - Pyrexia [Unknown]
  - Infection [Unknown]

NARRATIVE: CASE EVENT DATE: 20150407
